FAERS Safety Report 12786397 (Version 1)
Quarter: 2016Q3

REPORT INFORMATION
  Report Type: Spontaneous
  Country: US (occurrence: US)
  Receive Date: 20160927
  Receipt Date: 20160927
  Transmission Date: 20161109
  Serious: No
  Sender: FDA-Public Use
  Company Number: US-FRI-1000084530

PATIENT
  Sex: Female

DRUGS (1)
  1. LINZESS [Suspect]
     Active Substance: LINACLOTIDE
     Indication: COLONOSCOPY
     Dosage: 290 ?G, BID

REACTIONS (6)
  - Saliva discolouration [Unknown]
  - Palpitations [Recovered/Resolved]
  - Flushing [Unknown]
  - Off label use [Unknown]
  - Throat tightness [Not Recovered/Not Resolved]
  - Prescribed overdose [Unknown]

NARRATIVE: CASE EVENT DATE: 20160501
